FAERS Safety Report 7260697-8 (Version None)
Quarter: 2011Q1

REPORT INFORMATION
  Report Type: 
  Country: None (occurrence: None)
  Receive Date: 20110130
  Receipt Date: 20101221
  Transmission Date: 20110831
  Serious: No
  Sender: FDA-Public Use
  Company Number: US-ABBOTT-10P-163-0692980-00

PATIENT
  Age: 33 Year
  Sex: Male

DRUGS (4)
  1. PREDNISONE [Concomitant]
     Indication: PRODUCT USED FOR UNKNOWN INDICATION
     Dosage: 20MG EVERY OTHER DAY
     Route: 048
  2. PREDNISONE [Concomitant]
     Dosage: 20MG EVERY OTHER DAY
  3. HUMIRA [Suspect]
     Indication: CROHN'S DISEASE
     Dates: start: 20101118
  4. KLONOPIN [Concomitant]
     Indication: PRODUCT USED FOR UNKNOWN INDICATION
     Route: 048

REACTIONS (5)
  - JOINT SWELLING [None]
  - WEIGHT INCREASED [None]
  - INCREASED APPETITE [None]
  - ABDOMINAL PAIN [None]
  - SWELLING FACE [None]
